FAERS Safety Report 20485220 (Version 2)
Quarter: 2022Q1

REPORT INFORMATION
  Report Type: Spontaneous
  Country: JP (occurrence: JP)
  Receive Date: 20220217
  Receipt Date: 20220315
  Transmission Date: 20220423
  Serious: Yes (Hospitalization, Other)
  Sender: FDA-Public Use
  Company Number: JP-PFIZER INC-202200239969

PATIENT
  Age: 85 Year
  Sex: Female
  Weight: 51.4 kg

DRUGS (13)
  1. XELJANZ [Suspect]
     Active Substance: TOFACITINIB CITRATE
     Indication: Colitis ulcerative
     Dosage: 5 MG, 2X/DAY (AFTER BREAKFAST AND DINNER)
     Route: 048
     Dates: start: 20190821
  2. ASACOL [Concomitant]
     Active Substance: MESALAMINE
     Dosage: 1200 MG, 3X/DAY (AFTER EVERY MEAL)
  3. NEXIUM [Concomitant]
     Active Substance: ESOMEPRAZOLE MAGNESIUM
     Dosage: 20 MG, 1X/DAY (AFTER BREAKFAST)
  4. MIYA-BM [Concomitant]
     Active Substance: CLOSTRIDIUM BUTYRICUM SPORES STRAIN M-55
     Dosage: 2 TABLETS, 3X/DAY (AFTER EVERY MEAL)
  5. LASIX [Concomitant]
     Active Substance: FUROSEMIDE
     Dosage: 20 MG, 1X/DAY (AFTER BREAKFAST)
  6. MAGNESIUM OXIDE [Concomitant]
     Active Substance: MAGNESIUM OXIDE
     Dosage: 330 MG, 3X/DAY (AFTER EVERY MEAL)
     Dates: end: 20211026
  7. LOPERAMIDE HYDROCHLORIDE [Concomitant]
     Active Substance: LOPERAMIDE HYDROCHLORIDE
     Indication: Diarrhoea
     Dosage: 1 MG, AS NEEDED
  8. FORTEO [Concomitant]
     Active Substance: TERIPARATIDE
     Dosage: 1 INJECTION
  9. CAMOSTAT MESYLATE [Concomitant]
     Active Substance: CAMOSTAT MESYLATE
     Dosage: 100 MG, 3X/DAY (AFTER EVERY MEAL)
  10. TOCOPHERYL NICOTINATE, D-.ALPHA. [Concomitant]
     Active Substance: TOCOPHERYL NICOTINATE, D-.ALPHA.
     Dosage: 200 MG, 3X/DAY (AFTER EVERY MEAL)
  11. ACTARIT [Concomitant]
     Active Substance: ACTARIT
     Dosage: 100 MG, 3X/DAY (AFTER EVERY MEAL)
  12. MIRABEGRON [Concomitant]
     Active Substance: MIRABEGRON
     Dosage: 50 MG, 1X/DAY (AFTER DINNER)
  13. MACTASE S [Concomitant]
     Dosage: 1 TABLETS, 3X/DAY (AFER EVERY MEAL)

REACTIONS (6)
  - Listeraemia [Recovering/Resolving]
  - Nausea [Unknown]
  - Anal incontinence [Unknown]
  - Vomiting [Unknown]
  - Pyrexia [Unknown]
  - Procalcitonin increased [Unknown]

NARRATIVE: CASE EVENT DATE: 20211024
